FAERS Safety Report 15615009 (Version 1)
Quarter: 2018Q4

REPORT INFORMATION
  Report Type: Spontaneous
  Country: BG (occurrence: BG)
  Receive Date: 20181114
  Receipt Date: 20181114
  Transmission Date: 20190205
  Serious: Yes (Hospitalization)
  Sender: FDA-Public Use
  Company Number: BG-ROCHE-2213404

PATIENT
  Sex: Female

DRUGS (2)
  1. ACTILYSE [Suspect]
     Active Substance: ALTEPLASE
     Indication: ATRIAL THROMBOSIS
     Route: 065
     Dates: start: 20181102, end: 20181102
  2. ACTILYSE [Suspect]
     Active Substance: ALTEPLASE
     Indication: CARDIAC VENTRICULAR THROMBOSIS

REACTIONS (1)
  - Drug effect incomplete [Unknown]

NARRATIVE: CASE EVENT DATE: 20181102
